FAERS Safety Report 19194645 (Version 2)
Quarter: 2022Q2

REPORT INFORMATION
  Report Type: Report from Study
  Country: US (occurrence: US)
  Receive Date: 20210429
  Receipt Date: 20220613
  Transmission Date: 20220720
  Serious: No
  Sender: FDA-Public Use
  Company Number: US-NOVARTISTESTPH-NVSC2021US097087

PATIENT
  Sex: Female

DRUGS (3)
  1. ILARIS [Suspect]
     Active Substance: CANAKINUMAB
     Indication: Pyrexia
     Dosage: 65 MG EVERY 4 WEEK
     Route: 058
     Dates: start: 20200806
  2. ILARIS [Suspect]
     Active Substance: CANAKINUMAB
     Dosage: 65 MG EVERY 6 WEEK
     Route: 058
  3. ILARIS [Suspect]
     Active Substance: CANAKINUMAB
     Dosage: 100 MG EVERY 8 WEEKS
     Route: 065
     Dates: start: 20000806

REACTIONS (2)
  - Pyrexia [Unknown]
  - Weight increased [Unknown]
